FAERS Safety Report 20957492 (Version 6)
Quarter: 2023Q1

REPORT INFORMATION
  Report Type: Spontaneous
  Country: CA (occurrence: CA)
  Receive Date: 20220614
  Receipt Date: 20230222
  Transmission Date: 20230417
  Serious: Yes (Hospitalization)
  Sender: FDA-Public Use
  Company Number: CA-PFIZER INC-202200760032

PATIENT
  Age: 78 Year
  Sex: Female
  Weight: 94 kg

DRUGS (6)
  1. BRAFTOVI [Suspect]
     Active Substance: ENCORAFENIB
     Indication: Colorectal cancer metastatic
     Dosage: 300 MG, DAILY
     Route: 048
     Dates: start: 20220518
  2. BRAFTOVI [Suspect]
     Active Substance: ENCORAFENIB
     Indication: Colon cancer metastatic
     Dosage: 225 MG, DAILY
     Route: 048
  3. BRAFTOVI [Suspect]
     Active Substance: ENCORAFENIB
     Dosage: 3 DF, DAILY (ADVISED PATIENT TO TAKE 3 CAPSULES DAILY)
  4. BRAFTOVI [Suspect]
     Active Substance: ENCORAFENIB
     Dosage: 150 MG, DAILY
     Route: 048
     Dates: end: 2023
  5. CETUXIMAB [Concomitant]
     Active Substance: CETUXIMAB
     Dosage: UNK
  6. PANITUMUMAB [Concomitant]
     Active Substance: PANITUMUMAB
     Indication: Colon cancer metastatic
     Dosage: 520 MG
     Route: 042
     Dates: start: 20220520

REACTIONS (8)
  - Fatigue [Recovered/Resolved]
  - Confusional state [Recovered/Resolved]
  - Cystitis escherichia [Unknown]
  - Malaise [Unknown]
  - Feeding disorder [Unknown]
  - Decreased appetite [Unknown]
  - Nausea [Unknown]
  - Vomiting [Unknown]

NARRATIVE: CASE EVENT DATE: 20220524
